FAERS Safety Report 6355661-7 (Version None)
Quarter: 2009Q3

REPORT INFORMATION
  Report Type: 
  Country: None (occurrence: None)
  Receive Date: 20090910
  Receipt Date: 20090817
  Transmission Date: 20100115
  Serious: Yes (Hospitalization)
  Sender: FDA-Public Use
  Company Number: ADR16662009

PATIENT
  Age: 80 Year
  Sex: Female

DRUGS (15)
  1. AMLODIPINE [Suspect]
     Indication: HYPERTENSION
     Dosage: 5MG ORAL
     Route: 048
     Dates: start: 20081101, end: 20090515
  2. METHOTREXATE SODIUM (10ML) [Concomitant]
  3. ACTONEL [Concomitant]
  4. DIGITOXIN (0.07MG) [Concomitant]
  5. DREISAFER (100MG) [Concomitant]
  6. FOLIC ACID [Concomitant]
  7. PREDNISOLON (5MG) [Concomitant]
  8. XIPAMIDE (10MG) [Concomitant]
  9. CARDANUM (50MG) [Concomitant]
  10. DELIX (2.5MG) [Concomitant]
  11. FALITHROM (3MG) [Concomitant]
  12. OMEPRAZOLE [Concomitant]
  13. SEROQUEL [Concomitant]
  14. SIMVAHEXAL (40MG) [Concomitant]
  15. TORASEMIDE (200MG) [Concomitant]

REACTIONS (6)
  - ALVEOLITIS [None]
  - CHOLESTASIS [None]
  - GENERAL PHYSICAL HEALTH DETERIORATION [None]
  - HEPATITIS [None]
  - JAUNDICE [None]
  - LIVER INJURY [None]
